FAERS Safety Report 10073063 (Version 1)
Quarter: 2014Q2

REPORT INFORMATION
  Report Type: Spontaneous
  Country: US (occurrence: US)
  Receive Date: 20140411
  Receipt Date: 20140411
  Transmission Date: 20141212
  Serious: Yes (Hospitalization, Other)
  Sender: FDA-Public Use
  Company Number: US-ACTAVIS-2014-06784

PATIENT
  Age: 20 Year
  Sex: Female

DRUGS (3)
  1. SULFASALAZINE (WATSON LABORATORIES) [Suspect]
     Indication: COLITIS ULCERATIVE
     Dosage: 500 MG, QID
     Route: 065
  2. MESALAZINE (UNKNOWN) [Suspect]
     Indication: COLITIS ULCERATIVE
     Dosage: UNK
     Route: 054
  3. BALSALAZIDE [Suspect]
     Indication: COLITIS ULCERATIVE
     Dosage: UNK
     Route: 065

REACTIONS (1)
  - Myocarditis [Recovered/Resolved]
